FAERS Safety Report 8010103-0 (Version None)
Quarter: 2011Q4

REPORT INFORMATION
  Report Type: 
  Country: None (occurrence: None)
  Receive Date: 20111228
  Receipt Date: 20111219
  Transmission Date: 20120403
  Serious: Yes (Other)
  Sender: FDA-Public Use
  Company Number: GB-BRISTOL-MYERS SQUIBB COMPANY-16300485

PATIENT
  Age: 63 Year
  Sex: Male
  Weight: 100 kg

DRUGS (8)
  1. ASPIRIN [Concomitant]
     Dosage: DISPERSIBLE TABS
  2. METFORMIN HCL [Concomitant]
  3. AMLODIPINE [Concomitant]
     Dosage: TABS
  4. RAMIPRIL [Concomitant]
     Dosage: CAPS
  5. GLICLAZIDE [Concomitant]
     Dosage: TABS 1 DF: 2 DF
  6. ONGLYZA [Suspect]
     Indication: DIABETES MELLITUS
     Route: 048
     Dates: start: 20111020, end: 20111108
  7. SIMVASTATIN [Concomitant]
     Dosage: ONE AT NIGHT TABS
  8. PAROXETINE HCL [Concomitant]
     Dosage: TABS

REACTIONS (3)
  - AGGRESSION [None]
  - MOOD SWINGS [None]
  - ANGER [None]
